FAERS Safety Report 5381694-3 (Version None)
Quarter: 2007Q2

REPORT INFORMATION
  Report Type: 
  Country: None (occurrence: None)
  Receive Date: 20070629
  Receipt Date: 20060907
  Transmission Date: 20071010
  Serious: Yes (Other)
  Sender: FDA-Public Use
  Company Number: 2006107799

PATIENT

DRUGS (1)
  1. SERTRALINE [Suspect]
     Indication: DRUG USE FOR UNKNOWN INDICATION
     Dosage: (25 MG)

REACTIONS (3)
  - BLOOD GLUCOSE INCREASED [None]
  - PALPITATIONS [None]
  - URGE INCONTINENCE [None]
